FAERS Safety Report 7134788-6 (Version None)
Quarter: 2010Q4

REPORT INFORMATION
  Report Type: 
  Country: None (occurrence: None)
  Receive Date: 20101203
  Receipt Date: 20080318
  Transmission Date: 20110411
  Serious: Yes (Life-Threatening)
  Sender: FDA-Public Use
  Company Number: NL-ROCHE-745326

PATIENT

DRUGS (3)
  1. XELODA [Suspect]
     Route: 048
  2. CISPLATIN [Suspect]
     Route: 042
  3. EPIRUBICIN [Suspect]
     Route: 042

REACTIONS (1)
  - DIHYDROPYRIMIDINE DEHYDROGENASE DEFICIENCY [None]
